FAERS Safety Report 7460252-0 (Version None)
Quarter: 2011Q2

REPORT INFORMATION
  Report Type: 
  Country: None (occurrence: None)
  Receive Date: 20110427
  Receipt Date: 20110418
  Transmission Date: 20111010
  Serious: Yes (Other)
  Sender: FDA-Public Use
  Company Number: TPA2011A01641

PATIENT
  Sex: Female

DRUGS (2)
  1. ACTOS [Suspect]
  2. METFORMIN (METFORMIN) [Suspect]

REACTIONS (1)
  - CEREBROVASCULAR ACCIDENT [None]
